FAERS Safety Report 5134576-6 (Version None)
Quarter: 2006Q4

REPORT INFORMATION
  Report Type: 
  Country: None (occurrence: None)
  Receive Date: 20061025
  Receipt Date: 20061011
  Transmission Date: 20070319
  Serious: Yes (Hospitalization, Other)
  Sender: FDA-Public Use
  Company Number: JP-PURDUE-MAG_2006_0000491

PATIENT
  Age: 87 Year
  Sex: Male

DRUGS (1)
  1. MORPHINE SULFATE CR TABLET 10 MG [Suspect]
     Indication: CANCER PAIN
     Dosage: 10 MG, DAILY
     Route: 048
     Dates: start: 19910101, end: 20060528

REACTIONS (4)
  - CARDIAC FAILURE [None]
  - CONDITION AGGRAVATED [None]
  - DELIRIUM [None]
  - DRUG WITHDRAWAL SYNDROME [None]
